FAERS Safety Report 7316358-X (Version None)
Quarter: 2011Q1

REPORT INFORMATION
  Report Type: 
  Country: None (occurrence: None)
  Receive Date: 20110225
  Receipt Date: 20110221
  Transmission Date: 20110831
  Serious: Yes (Hospitalization)
  Sender: FDA-Public Use
  Company Number: US-B.I. PHARMACEUTICALS,INC./RIDGEFIELD-2011-BP-01573BP

PATIENT
  Age: 79 Year
  Sex: Female

DRUGS (13)
  1. CRESTOR [Concomitant]
     Indication: BLOOD CHOLESTEROL INCREASED
     Dosage: 5 MG
  2. CARDIZEM [Concomitant]
     Indication: ATRIAL FIBRILLATION
     Dosage: 180 MG
  3. ASPIRIN [Concomitant]
     Indication: ATRIAL FIBRILLATION
     Dosage: 81 MG
  4. PRADAXA [Suspect]
     Indication: COAGULATION TIME PROLONGED
  5. CORBADRE [Concomitant]
     Indication: PARKINSON'S DISEASE
  6. PRADAXA [Suspect]
     Indication: ATRIAL FIBRILLATION
     Dosage: 300 MG
     Route: 048
     Dates: start: 20101101
  7. SINEMET [Concomitant]
     Indication: PARKINSON'S DISEASE
  8. XANAX [Concomitant]
     Dosage: 0.25 MG
  9. LASIX [Concomitant]
     Indication: CARDIAC FAILURE CONGESTIVE
     Dosage: 20 MG
  10. REGLAN [Concomitant]
     Indication: GASTRIC DISORDER
     Dosage: 5 MG
  11. POTASSIUM [Concomitant]
     Indication: SUPPLEMENTATION THERAPY
  12. METFORMIN HCL [Concomitant]
     Indication: DIABETES MELLITUS
     Dosage: 500 MG
  13. TOPROL-XL [Concomitant]
     Indication: HYPERTENSION
     Dosage: 100 MG

REACTIONS (7)
  - INFLUENZA [None]
  - DIARRHOEA [None]
  - HEART RATE IRREGULAR [None]
  - BLOOD COUNT ABNORMAL [None]
  - PAIN IN EXTREMITY [None]
  - ASTHENIA [None]
  - DYSPNOEA [None]
